FAERS Safety Report 4850682-5 (Version None)
Quarter: 2005Q4

REPORT INFORMATION
  Report Type: 
  Country: None (occurrence: None)
  Receive Date: 20051208
  Receipt Date: 20051208
  Transmission Date: 20060501
  Serious: Yes (Hospitalization)
  Sender: FDA-Public Use
  Company Number: None

PATIENT
  Age: 51 Year
  Sex: Male

DRUGS (4)
  1. TNKASE [Suspect]
     Indication: MYOCARDIAL INFARCTION
     Dates: start: 20040917
  2. CLOPIDOGREL [Concomitant]
  3. ASPIRIN [Concomitant]
  4. ENOXAPARIN SODIUM [Concomitant]

REACTIONS (4)
  - BRAIN SCAN ABNORMAL [None]
  - CEREBRAL HAEMORRHAGE [None]
  - DOCUMENTED HYPERSENSITIVITY TO ADMINISTERED DRUG [None]
  - DRUG INTERACTION [None]
